FAERS Safety Report 11047200 (Version 1)
Quarter: 2015Q2

REPORT INFORMATION
  Report Type: Spontaneous
  Country: CA (occurrence: CA)
  Receive Date: 20150420
  Receipt Date: 20150420
  Transmission Date: 20150821
  Serious: Yes (Other)
  Sender: FDA-Public Use
  Company Number: CA-ACTAVIS-2015-07981

PATIENT
  Age: 70 Year
  Sex: Female

DRUGS (1)
  1. ATENOLOL. [Suspect]
     Active Substance: ATENOLOL
     Indication: PRODUCT USED FOR UNKNOWN INDICATION
     Dosage: 1 DF, DAILY
     Route: 065
     Dates: start: 20150129

REACTIONS (6)
  - Headache [Unknown]
  - Nausea [Unknown]
  - Asthenia [Unknown]
  - Product odour abnormal [None]
  - Hypertension [Unknown]
  - Abdominal pain upper [Unknown]
